FAERS Safety Report 6620643-4 (Version None)
Quarter: 2010Q1

REPORT INFORMATION
  Report Type: 
  Country: None (occurrence: None)
  Receive Date: 20100309
  Receipt Date: 20100226
  Transmission Date: 20100710
  Serious: Yes (Other)
  Sender: FDA-Public Use
  Company Number: GB-PFIZER INC-2010025703

PATIENT
  Sex: Male

DRUGS (1)
  1. ALPROSTADIL [Suspect]

REACTIONS (2)
  - DEVICE OCCLUSION [None]
  - HAEMORRHAGE [None]
